FAERS Safety Report 8415007-7 (Version None)
Quarter: 2012Q2

REPORT INFORMATION
  Report Type: 
  Country: None (occurrence: None)
  Receive Date: 20120530
  Receipt Date: 20120517
  Transmission Date: 20120825
  Serious: Yes (Hospitalization, Other)
  Sender: FDA-Public Use
  Company Number: WAES 1110USA02987

PATIENT
  Age: 72 Year
  Sex: Female
  Weight: 63.9572 kg

DRUGS (2)
  1. ZOLINZA [Suspect]
     Indication: ACUTE MYELOID LEUKAEMIA
     Dosage: 300 MG/DAILY/PO
     Route: 048
     Dates: start: 20110913, end: 20110926
  2. VELCADE [Suspect]
     Indication: ACUTE MYELOID LEUKAEMIA
     Dosage: 1.7 MG/DAILY/IV
     Route: 042
     Dates: start: 20110913, end: 20110923

REACTIONS (32)
  - DIZZINESS EXERTIONAL [None]
  - ABDOMINAL DISTENSION [None]
  - RASH [None]
  - DECREASED APPETITE [None]
  - HYPOPHAGIA [None]
  - TREMOR [None]
  - DYSPNOEA [None]
  - NAUSEA [None]
  - RESPIRATORY DISTRESS [None]
  - DEHYDRATION [None]
  - ASTHENIA [None]
  - NEURALGIA [None]
  - UNRESPONSIVE TO STIMULI [None]
  - HYPOTONIA [None]
  - DYSPNOEA EXERTIONAL [None]
  - CROHN'S DISEASE [None]
  - LUNG INFILTRATION [None]
  - DYSGEUSIA [None]
  - FATIGUE [None]
  - CONTUSION [None]
  - RALES [None]
  - SYNCOPE [None]
  - ABDOMINAL PAIN [None]
  - MYELOID LEUKAEMIA [None]
  - DIARRHOEA [None]
  - PYREXIA [None]
  - TOXICITY TO VARIOUS AGENTS [None]
  - BREATH SOUNDS ABNORMAL [None]
  - FLUID INTAKE REDUCED [None]
  - VOMITING [None]
  - SMALL INTESTINAL OBSTRUCTION [None]
  - CONDITION AGGRAVATED [None]
